FAERS Safety Report 10016699 (Version 1)
Quarter: 2014Q1

REPORT INFORMATION
  Report Type: Spontaneous
  Country: US (occurrence: US)
  Receive Date: 20140318
  Receipt Date: 20140318
  Transmission Date: 20141002
  Serious: Yes (Other)
  Sender: FDA-Public Use
  Company Number: US-AMGEN-USASP2014017923

PATIENT
  Age: 77 Month
  Sex: Male

DRUGS (2)
  1. PROCRIT [Suspect]
     Indication: IRON DEFICIENCY ANAEMIA
     Dosage: 10000 UNIT, QD
     Route: 065
  2. ARANESP [Suspect]
     Indication: IRON DEFICIENCY ANAEMIA
     Dosage: 100 MUG, UNK
     Route: 065
     Dates: start: 20140307

REACTIONS (2)
  - Haemoglobin abnormal [Unknown]
  - Drug ineffective [Unknown]
